FAERS Safety Report 8108699 (Version 2)
Quarter: 2012Q4

REPORT INFORMATION
  Report Type: 
  Country: JP (occurrence: JP)
  Receive Date: 20110826
  Receipt Date: 20120911
  Transmission Date: 20130627
  Serious: Yes (Life-Threatening, Hospitalization, Other)
  Sender: FDA-Public Use
  Company Number: JP-ROCHE-786009

PATIENT
  Age: 61 Year
  Sex: Male
  Weight: 65 kg

DRUGS (4)
  1. XELODA [Suspect]
     Indication: LARGE INTESTINE CARCINOMA
     Dosage: DRUG:XELODA 300. ADMINISTERED WEEKLY HOLIDAY MEDICINE FOR TWO WEEKS.
     Route: 048
     Dates: start: 20110510, end: 20110524
  2. XELODA [Suspect]
     Dosage: DRUG:XELODA 300. ADMINISTERED WEEKLY HOLIDAY MEDICINE FOR TWO WEEKS.
     Route: 048
     Dates: start: 20110531, end: 20110610
  3. AVASTIN [Suspect]
     Indication: COLON CANCER RECURRENT
     Dosage: ROUTE: INTRAVENOUS DRIP
     Route: 042
     Dates: start: 20110510, end: 20110531
  4. ELPLAT [Concomitant]
     Dosage: ROUTE: INTRAVENOUS DRIP.
     Route: 042
     Dates: start: 20110510, end: 20110531

REACTIONS (5)
  - Enterocolitis haemorrhagic [Recovered/Resolved]
  - Disseminated intravascular coagulation [Recovered/Resolved]
  - Sepsis [Recovering/Resolving]
  - Acute respiratory failure [Recovered/Resolved]
  - Decreased appetite [Recovered/Resolved]
